FAERS Safety Report 9428334 (Version 1)
Quarter: 2013Q3

REPORT INFORMATION
  Report Type: Report from Study
  Country: US (occurrence: US)
  Receive Date: 20130730
  Receipt Date: 20130730
  Transmission Date: 20140515
  Serious: No
  Sender: FDA-Public Use
  Company Number: US-ABBOTT-12P-163-1013190-00

PATIENT
  Age: 70 Year
  Sex: Female
  Weight: 65.83 kg

DRUGS (8)
  1. NIASPAN (COATED) [Suspect]
     Indication: BLOOD CHOLESTEROL INCREASED
     Dosage: AT BEDTIME
     Route: 048
     Dates: end: 201110
  2. NIASPAN (COATED) [Suspect]
     Dosage: AT BEDTIME
     Route: 048
     Dates: start: 20121008
  3. NIASPAN (COATED) [Suspect]
     Dosage: AT BEDTIME
     Route: 048
     Dates: start: 201211, end: 20121124
  4. DESONIDE [Suspect]
     Indication: EYE DISORDER
     Dates: start: 201211
  5. TRIAMTERENE [Concomitant]
     Indication: PRODUCT USED FOR UNKNOWN INDICATION
     Dosage: 37.5/25MG AT BEDTIME
     Route: 048
  6. MVI [Concomitant]
     Indication: PRODUCT USED FOR UNKNOWN INDICATION
  7. VIT D [Concomitant]
     Indication: PRODUCT USED FOR UNKNOWN INDICATION
     Dosage: AT BEDTIME
     Route: 048
  8. CO Q10 [Concomitant]
     Indication: PRODUCT USED FOR UNKNOWN INDICATION

REACTIONS (11)
  - Lacrimation increased [Recovering/Resolving]
  - Ocular hyperaemia [Recovering/Resolving]
  - Rash erythematous [Recovering/Resolving]
  - Eye swelling [Recovering/Resolving]
  - Ocular hyperaemia [Recovering/Resolving]
  - Eye pruritus [Recovering/Resolving]
  - Eye irritation [Recovering/Resolving]
  - Flushing [Recovered/Resolved]
  - Flushing [Unknown]
  - Pruritus [Recovering/Resolving]
  - Nausea [Recovered/Resolved]
